FAERS Safety Report 22639834 (Version 7)
Quarter: 2023Q4

REPORT INFORMATION
  Report Type: Spontaneous
  Country: US (occurrence: US)
  Receive Date: 20230626
  Receipt Date: 20231002
  Transmission Date: 20240109
  Serious: Yes (Other)
  Sender: FDA-Public Use
  Company Number: US-PFIZER INC-PV202300108863

PATIENT
  Age: 30 Year
  Sex: Female

DRUGS (1)
  1. IBRANCE [Suspect]
     Active Substance: PALBOCICLIB
     Dosage: 125 MG

REACTIONS (14)
  - Hysterectomy [Unknown]
  - Infection [Unknown]
  - Abdominal discomfort [Unknown]
  - Pain [Unknown]
  - Musculoskeletal stiffness [Unknown]
  - Nausea [Recovering/Resolving]
  - Neck pain [Recovering/Resolving]
  - Fatigue [Unknown]
  - Chills [Unknown]
  - Malaise [Unknown]
  - Full blood count decreased [Unknown]
  - Anxiety [Unknown]
  - Arthralgia [Unknown]
  - Hot flush [Unknown]

NARRATIVE: CASE EVENT DATE: 20230628
